FAERS Safety Report 6142460-4 (Version None)
Quarter: 2009Q2

REPORT INFORMATION
  Report Type: 
  Country: None (occurrence: None)
  Receive Date: 20090402
  Receipt Date: 20090402
  Transmission Date: 20091009
  Serious: No
  Sender: FDA-Public Use
  Company Number: None

PATIENT
  Age: 75 Year
  Sex: Male
  Weight: 63.5036 kg

DRUGS (2)
  1. WARFARIN SODIUM [Suspect]
     Indication: ANTICOAGULANT THERAPY
     Dosage: 25 MG LAB 6 WEEKS DAILY - MORE STABILIZED
  2. WARFARIN SODIUM [Suspect]
     Indication: ANTICOAGULANT THERAPY
     Dosage: 25 MG LAB WEEKLY DAILY DOSAGE HIGHER

REACTIONS (2)
  - BLOOD COUNT ABNORMAL [None]
  - PRODUCT QUALITY ISSUE [None]
